FAERS Safety Report 5709606-0 (Version None)
Quarter: 2008Q2

REPORT INFORMATION
  Report Type: 
  Country: None (occurrence: None)
  Receive Date: 20080418
  Receipt Date: 20080414
  Transmission Date: 20081010
  Serious: Yes (Hospitalization)
  Sender: FDA-Public Use
  Company Number: A0722589A

PATIENT
  Age: 10 Year
  Sex: Female

DRUGS (4)
  1. ADVAIR HFA [Suspect]
     Indication: ASTHMA
     Dosage: 1PUFF TWICE PER DAY
     Route: 055
     Dates: start: 20070501
  2. ZYRTEC [Concomitant]
  3. SINGULAIR [Concomitant]
  4. MIRALAX [Concomitant]

REACTIONS (7)
  - ABDOMINAL PAIN [None]
  - EOSINOPHILIC OESOPHAGITIS [None]
  - FATIGUE [None]
  - GASTROENTERITIS EOSINOPHILIC [None]
  - MILK ALLERGY [None]
  - NAUSEA [None]
  - VOMITING [None]
